FAERS Safety Report 13412757 (Version 3)
Quarter: 2020Q1

REPORT INFORMATION
  Report Type: Spontaneous
  Country: US (occurrence: US)
  Receive Date: 20170406
  Receipt Date: 20200313
  Transmission Date: 20200409
  Serious: No
  Sender: FDA-Public Use
  Company Number: US-JNJFOC-20170310905

PATIENT
  Age: 20 Year
  Sex: Male

DRUGS (20)
  1. RISPERDAL [Suspect]
     Active Substance: RISPERIDONE
     Route: 048
     Dates: start: 20121203, end: 20130115
  2. RISPERDAL [Suspect]
     Active Substance: RISPERIDONE
     Route: 048
     Dates: start: 20090904, end: 20130822
  3. RISPERDAL [Suspect]
     Active Substance: RISPERIDONE
     Route: 048
     Dates: start: 20111217, end: 20120109
  4. RISPERIDONE. [Suspect]
     Active Substance: RISPERIDONE
     Indication: SCHIZOAFFECTIVE DISORDER
     Dosage: VARYING DOSE OF 1 MG TO 4 MG
     Route: 048
     Dates: start: 20090416, end: 20130822
  5. INVEGA [Suspect]
     Active Substance: PALIPERIDONE
     Indication: SCHIZOAFFECTIVE DISORDER
     Dosage: VARYING DOSE OF 3 MG TO 6 MG
     Route: 048
     Dates: start: 20131004, end: 20150310
  6. RISPERDAL [Suspect]
     Active Substance: RISPERIDONE
     Route: 048
     Dates: start: 20090416, end: 20090527
  7. RISPERDAL [Suspect]
     Active Substance: RISPERIDONE
     Dosage: VARYING DOSE OF 1 MG TO 4 MG
     Route: 048
     Dates: start: 20090905, end: 20121202
  8. INVEGA SUSTENNA [Suspect]
     Active Substance: PALIPERIDONE PALMITATE
     Route: 030
     Dates: start: 20131121, end: 20140402
  9. INVEGA SUSTENNA [Suspect]
     Active Substance: PALIPERIDONE PALMITATE
     Route: 030
     Dates: start: 20140123, end: 20140304
  10. RISPERDAL [Suspect]
     Active Substance: RISPERIDONE
     Dosage: VARYING DOSE OF 2 MG TO 3 MG
     Route: 048
     Dates: start: 20110916, end: 20111019
  11. RISPERIDONE. [Suspect]
     Active Substance: RISPERIDONE
     Dosage: AT NIGHT
     Route: 048
     Dates: start: 20110811, end: 20110915
  12. INVEGA SUSTENNA [Suspect]
     Active Substance: PALIPERIDONE PALMITATE
     Indication: SCHIZOAFFECTIVE DISORDER
     Route: 030
     Dates: start: 20131011
  13. INVEGA SUSTENNA [Suspect]
     Active Substance: PALIPERIDONE PALMITATE
     Route: 030
     Dates: start: 20140529, end: 20141224
  14. RISPERDAL [Suspect]
     Active Substance: RISPERIDONE
     Indication: PSYCHOTIC DISORDER
     Route: 048
     Dates: start: 20070627, end: 20070714
  15. RISPERDAL [Suspect]
     Active Substance: RISPERIDONE
     Dosage: 2 MG IN AM, 1 MG AT NIGHT
     Route: 048
     Dates: start: 20101001
  16. ZYPREXA [Suspect]
     Active Substance: OLANZAPINE
     Indication: SCHIZOAFFECTIVE DISORDER
     Route: 065
     Dates: start: 2015
  17. RISPERDAL [Suspect]
     Active Substance: RISPERIDONE
     Indication: SCHIZOAFFECTIVE DISORDER
     Route: 048
     Dates: start: 20070626
  18. RISPERDAL [Suspect]
     Active Substance: RISPERIDONE
     Dosage: 2 MG IN THE AM AND 1.5 MG IN PM
     Route: 048
     Dates: start: 20111216
  19. RISPERDAL [Suspect]
     Active Substance: RISPERIDONE
     Dosage: 2 MG QAM, AND 4 MG QHS
     Route: 048
     Dates: start: 20150727, end: 20150812
  20. INVEGA [Suspect]
     Active Substance: PALIPERIDONE
     Route: 048
     Dates: start: 20140201

REACTIONS (3)
  - Emotional distress [Unknown]
  - Gynaecomastia [Unknown]
  - Somnolence [Unknown]

NARRATIVE: CASE EVENT DATE: 20101013
